FAERS Safety Report 17583394 (Version 1)
Quarter: 2020Q1

REPORT INFORMATION
  Report Type: Report from Study
  Country: None (occurrence: GB)
  Receive Date: 20200326
  Receipt Date: 20200326
  Transmission Date: 20200409
  Serious: Yes (Hospitalization)
  Sender: FDA-Public Use
  Company Number: GB-ABBVIE-20K-167-3335867-00

PATIENT
  Age: 44 Year
  Sex: Male

DRUGS (2)
  1. IMRALDI [Suspect]
     Active Substance: ADALIMUMAB
     Indication: PRODUCT USED FOR UNKNOWN INDICATION
     Route: 058
  2. ADALIMUMAB [Suspect]
     Active Substance: ADALIMUMAB
     Indication: PRODUCT USED FOR UNKNOWN INDICATION
     Route: 058

REACTIONS (8)
  - Cholangitis [Unknown]
  - Product substitution issue [Unknown]
  - Hypertension [Unknown]
  - Liver abscess [Unknown]
  - Yellow skin [Unknown]
  - Abdominal sepsis [Unknown]
  - Lymphadenopathy [Unknown]
  - Tremor [Recovered/Resolved]
